FAERS Safety Report 6138404-1 (Version None)
Quarter: 2009Q1

REPORT INFORMATION
  Report Type: 
  Country: None (occurrence: None)
  Receive Date: 20090331
  Receipt Date: 20090330
  Transmission Date: 20090719
  Serious: Yes (Other)
  Sender: FDA-Public Use
  Company Number: PHHO2007US18723

PATIENT
  Sex: Male

DRUGS (2)
  1. CIBADREX T29368+ [Suspect]
     Indication: HYPERTENSION
     Dosage: LEVEL 1
     Route: 048
  2. CIBADREX T29368+ [Suspect]
     Dosage: LEVEL 2
     Route: 048

REACTIONS (2)
  - HYPOTENSION [None]
  - PRESYNCOPE [None]
